FAERS Safety Report 11881668 (Version 1)
Quarter: 2015Q4

REPORT INFORMATION
  Report Type: Spontaneous
  Country: US (occurrence: US)
  Receive Date: 20151231
  Receipt Date: 20151231
  Transmission Date: 20160305
  Serious: No
  Sender: FDA-Public Use
  Company Number: US-PFIZER INC-2015374389

PATIENT
  Age: 47 Year
  Sex: Female

DRUGS (3)
  1. IBRANCE [Suspect]
     Active Substance: PALBOCICLIB
     Indication: BREAST CANCER
     Dosage: 125 MG, CYCLIC (1 CAPSULE BY MOUTH DAILY FOR 21 DAYS, THEN 7 DAYS OFF, THEN REPEAT)
     Route: 048
  2. IBRANCE [Suspect]
     Active Substance: PALBOCICLIB
     Dosage: 100 MG, CYCLIC (1 CAP BY MOUTH QD FOR 21 DAYS, THEN 7 DAYS OFF)
     Route: 048
  3. FASLODEX [Suspect]
     Active Substance: FULVESTRANT
     Dosage: UNK

REACTIONS (4)
  - Fluid retention [Unknown]
  - Asthenia [Unknown]
  - Off label use [Unknown]
  - Fatigue [Unknown]
